FAERS Safety Report 14649370 (Version 1)
Quarter: 2018Q1

REPORT INFORMATION
  Report Type: Spontaneous
  Country: PL (occurrence: PL)
  Receive Date: 20180316
  Receipt Date: 20180316
  Transmission Date: 20180509
  Serious: Yes (Hospitalization)
  Sender: FDA-Public Use
  Company Number: PL-TEVA-2018-PL-869335

PATIENT
  Age: 15 Year
  Sex: Male
  Weight: 30 kg

DRUGS (1)
  1. VINCRISTINE [Suspect]
     Active Substance: VINCRISTINE
     Indication: LYMPHOCYTIC LEUKAEMIA

REACTIONS (4)
  - Blood bilirubin increased [Unknown]
  - Hypoalbuminaemia [Unknown]
  - Blood electrolytes abnormal [Unknown]
  - Ileus paralytic [Unknown]
